FAERS Safety Report 16942365 (Version 1)
Quarter: 2019Q4

REPORT INFORMATION
  Report Type: Spontaneous
  Country: US (occurrence: US)
  Receive Date: 20191021
  Receipt Date: 20191021
  Transmission Date: 20200122
  Serious: Yes (Life-Threatening, Hospitalization)
  Sender: FDA-Public Use
  Company Number: US-SA-2019SA290364

PATIENT
  Age: 55 Year
  Sex: Male
  Weight: 64.9 kg

DRUGS (16)
  1. LEUCOVORIN [FOLINIC ACID] [Suspect]
     Active Substance: LEUCOVORIN
     Dosage: 400 MG/M2, UNK
     Route: 042
     Dates: start: 20181119, end: 20181119
  2. FLUOROURACIL. [Suspect]
     Active Substance: FLUOROURACIL
     Indication: ADENOCARCINOMA PANCREAS
     Dosage: 400 MG/M2, UNK
     Route: 040
     Dates: start: 20181022, end: 20181022
  3. PEMBROLIZUMAB. [Suspect]
     Active Substance: PEMBROLIZUMAB
     Indication: ADENOCARCINOMA PANCREAS
     Dosage: 200 MG, Q3W
     Route: 042
     Dates: start: 20181022
  4. OXALIPLATIN. [Suspect]
     Active Substance: OXALIPLATIN
     Dosage: 85 MG/M2, UNK
     Route: 042
     Dates: start: 20181022, end: 20181022
  5. LEUCOVORIN [FOLINIC ACID] [Suspect]
     Active Substance: LEUCOVORIN
     Dosage: 400 MG/M2, UNK
     Route: 042
     Dates: start: 20181119, end: 20181119
  6. EPACADOSTAT [Suspect]
     Active Substance: EPACADOSTAT
     Indication: ADENOCARCINOMA PANCREAS
     Dosage: 100 MG, BID
     Route: 048
     Dates: start: 20181022
  7. LEUCOVORIN [FOLINIC ACID] [Suspect]
     Active Substance: LEUCOVORIN
     Dosage: 400 MG/M2, UNK
     Route: 042
     Dates: start: 20181203, end: 20181203
  8. LEUCOVORIN [FOLINIC ACID] [Suspect]
     Active Substance: LEUCOVORIN
     Dosage: 400 MG/M2, UNK
     Route: 042
     Dates: start: 20181203, end: 20181203
  9. OXALIPLATIN. [Suspect]
     Active Substance: OXALIPLATIN
     Indication: ADENOCARCINOMA PANCREAS
     Dosage: 85 MG/M2, UNK
     Route: 042
     Dates: start: 20181022, end: 20181022
  10. OXALIPLATIN. [Suspect]
     Active Substance: OXALIPLATIN
     Dosage: 85 MG/M2, UNK
     Route: 042
     Dates: start: 20181203, end: 20181203
  11. FLUOROURACIL. [Suspect]
     Active Substance: FLUOROURACIL
     Dosage: UNK
     Route: 040
     Dates: start: 20181203
  12. LEUCOVORIN [FOLINIC ACID] [Suspect]
     Active Substance: LEUCOVORIN
     Indication: ADENOCARCINOMA PANCREAS
     Dosage: 400 MG/M2, UNK
     Route: 042
     Dates: start: 20181022, end: 20181022
  13. FLUOROURACIL. [Suspect]
     Active Substance: FLUOROURACIL
     Dosage: 1200 MG/M2, QD
     Route: 040
     Dates: start: 20181022, end: 20181024
  14. FLUOROURACIL. [Suspect]
     Active Substance: FLUOROURACIL
     Dosage: 1200 MG/M2, QD
     Route: 040
     Dates: start: 20181119, end: 20181121
  15. FLUOROURACIL. [Suspect]
     Active Substance: FLUOROURACIL
     Dosage: 1200 MG/M2, QD
     Route: 040
     Dates: start: 20181119, end: 20181121
  16. LEUCOVORIN [FOLINIC ACID] [Suspect]
     Active Substance: LEUCOVORIN
     Dosage: 400 MG/M2, UNK
     Route: 042
     Dates: start: 20181022, end: 20181022

REACTIONS (5)
  - Anaemia [Recovered/Resolved]
  - Large intestine infection [Recovered/Resolved]
  - Pyrexia [Recovered/Resolved]
  - Vomiting [Recovered/Resolved]
  - Diarrhoea [Recovered/Resolved]

NARRATIVE: CASE EVENT DATE: 20181213
